FAERS Safety Report 9852040 (Version 2)
Quarter: 2014Q1

REPORT INFORMATION
  Report Type: Spontaneous
  Country: US (occurrence: US)
  Receive Date: 20140129
  Receipt Date: 20140129
  Transmission Date: 20141002
  Serious: No
  Sender: FDA-Public Use
  Company Number: US-PFIZER INC-2013270636

PATIENT
  Age: 49 Year
  Sex: 0

DRUGS (15)
  1. ENBREL [Suspect]
     Dosage: UNK
  2. CELEBREX [Suspect]
     Dosage: UNK
  3. ARAVA [Suspect]
     Dosage: UNK
  4. FENTANYL [Suspect]
     Dosage: UNK
  5. CODEINE [Suspect]
     Dosage: UNK
  6. HUMIRA [Suspect]
     Dosage: UNK
  7. HYCODAN [Suspect]
     Dosage: UNK
  8. VIOXX [Suspect]
     Dosage: UNK
  9. TETANUS VACCINE [Suspect]
     Dosage: UNK
  10. HYDROCODON [Suspect]
     Dosage: UNK
  11. METHOTREXATE [Concomitant]
     Dosage: UNK
  12. ESTROVEN [Concomitant]
     Dosage: UNK
  13. LYRICA [Concomitant]
     Dosage: 50 MG, UNK
  14. MOBIC [Concomitant]
     Dosage: UNK
  15. EXCEDRIN [Concomitant]
     Dosage: UNK

REACTIONS (1)
  - Drug hypersensitivity [Unknown]
